FAERS Safety Report 8111294-3 (Version None)
Quarter: 2012Q1

REPORT INFORMATION
  Report Type: 
  Country: None (occurrence: None)
  Receive Date: 20120203
  Receipt Date: 20110812
  Transmission Date: 20120608
  Serious: Yes (Disabling)
  Sender: FDA-Public Use
  Company Number: US-GLAXOSMITHKLINE-A0940914A

PATIENT
  Sex: Female

DRUGS (2)
  1. LAMOTRIGINE [Suspect]
     Indication: DEPRESSION
     Route: 048
  2. MULTIPLE MEDICATIONS [Concomitant]

REACTIONS (4)
  - PRURITUS [None]
  - DEPRESSIVE SYMPTOM [None]
  - DEPRESSION [None]
  - RASH [None]
